FAERS Safety Report 24115148 (Version 1)
Quarter: 2024Q3

REPORT INFORMATION
  Report Type: Spontaneous
  Country: US (occurrence: US)
  Receive Date: 20240721
  Receipt Date: 20240721
  Transmission Date: 20241017
  Serious: No
  Sender: NOVO NORDISK
  Company Number: US-NOVOPROD-1186000

PATIENT
  Age: 53 Year
  Sex: Female

DRUGS (3)
  1. WEGOVY [Suspect]
     Active Substance: SEMAGLUTIDE
     Indication: Weight control
     Dosage: 2.4MG
     Route: 058
     Dates: start: 20230415
  2. WEGOVY [Suspect]
     Active Substance: SEMAGLUTIDE
     Indication: Blood cholesterol increased
  3. WEGOVY [Suspect]
     Active Substance: SEMAGLUTIDE
     Indication: Body mass index increased

REACTIONS (5)
  - Decreased appetite [Unknown]
  - Nausea [Recovered/Resolved]
  - Vomiting [Not Recovered/Not Resolved]
  - Fatigue [Recovered/Resolved]
  - Inappropriate schedule of product administration [Unknown]

NARRATIVE: CASE EVENT DATE: 20230401
